FAERS Safety Report 4481085-3 (Version None)
Quarter: 2004Q4

REPORT INFORMATION
  Report Type: 
  Country: None (occurrence: None)
  Receive Date: 20041019
  Receipt Date: 20041019
  Transmission Date: 20050328
  Serious: Yes (Other)
  Sender: FDA-Public Use
  Company Number: None

PATIENT
  Sex: Female
  Weight: 49.8957 kg

DRUGS (1)
  1. OXYCONTIN [Suspect]
     Indication: SPINAL FUSION SURGERY
     Dosage: 80 MG (3) Q 8 H
     Dates: start: 19960101

REACTIONS (2)
  - GASTROINTESTINAL DISORDER [None]
  - PHARMACEUTICAL PRODUCT COMPLAINT [None]
